FAERS Safety Report 12336491 (Version 1)
Quarter: 2016Q2

REPORT INFORMATION
  Report Type: Spontaneous
  Country: US (occurrence: US)
  Receive Date: 20160505
  Receipt Date: 20160505
  Transmission Date: 20160815
  Serious: No
  Sender: FDA-Public Use
  Company Number: US-BAYER-2016-079956

PATIENT
  Age: 26 Year
  Sex: Female
  Weight: 63.49 kg

DRUGS (1)
  1. CLARITIN [Suspect]
     Active Substance: LORATADINE
     Indication: SEASONAL ALLERGY
     Dosage: 1 DF, QD
     Route: 048
     Dates: end: 20160425

REACTIONS (11)
  - Muscle tightness [None]
  - Throat irritation [None]
  - Head discomfort [None]
  - Condition aggravated [None]
  - Lacrimation increased [None]
  - Product use issue [None]
  - Sneezing [None]
  - Eye pruritus [None]
  - Drug ineffective [None]
  - Rhinorrhoea [None]
  - Headache [None]
